FAERS Safety Report 11117350 (Version 2)
Quarter: 2015Q3

REPORT INFORMATION
  Report Type: Spontaneous
  Country: US (occurrence: US)
  Receive Date: 20150515
  Receipt Date: 20150911
  Transmission Date: 20151125
  Serious: Yes (Hospitalization)
  Sender: FDA-Public Use
  Company Number: US-CELGENEUS-USA-2015052129

PATIENT
  Age: 84 Year
  Sex: Male
  Weight: 114 kg

DRUGS (4)
  1. REVLIMID [Suspect]
     Active Substance: LENALIDOMIDE
     Indication: PLASMA CELL MYELOMA
     Dosage: 25 MILLIGRAM
     Route: 048
     Dates: start: 201407, end: 20150817
  2. FELODIPINE. [Concomitant]
     Active Substance: FELODIPINE
     Indication: HAEMOGLOBIN INCREASED
     Route: 065
  3. CYANOCOBALAMIN. [Concomitant]
     Active Substance: CYANOCOBALAMIN
     Indication: PRODUCT USED FOR UNKNOWN INDICATION
     Route: 065
  4. BORTEZOMIB [Concomitant]
     Active Substance: BORTEZOMIB
     Indication: PRODUCT USED FOR UNKNOWN INDICATION
     Route: 065

REACTIONS (6)
  - Pancytopenia [Unknown]
  - Systemic inflammatory response syndrome [Recovered/Resolved]
  - Syncope [Unknown]
  - Dyspnoea [Unknown]
  - Dehydration [Unknown]
  - Troponin increased [Unknown]

NARRATIVE: CASE EVENT DATE: 201408
